FAERS Safety Report 8248490-0 (Version None)
Quarter: 2012Q1

REPORT INFORMATION
  Report Type: 
  Country: None (occurrence: None)
  Receive Date: 20120330
  Receipt Date: 20120327
  Transmission Date: 20120608
  Serious: Yes (Hospitalization, Other)
  Sender: FDA-Public Use
  Company Number: AT-MERCK-1203AUT00009

PATIENT
  Age: 17 Year
  Sex: Male

DRUGS (6)
  1. LEVOTHYROXINE SODIUM [Suspect]
     Route: 048
     Dates: start: 20110901, end: 20110901
  2. SINGULAIR [Suspect]
     Indication: ASTHMA
     Route: 048
     Dates: start: 20110901, end: 20110901
  3. EBASTINE [Suspect]
     Route: 048
     Dates: start: 20110901, end: 20110901
  4. SINGULAIR [Suspect]
     Route: 048
     Dates: end: 20110901
  5. METFORMIN HCL [Suspect]
     Route: 048
     Dates: start: 20110901, end: 20110901
  6. MEFENAMIC ACID [Suspect]
     Route: 048
     Dates: start: 20110901, end: 20110901

REACTIONS (4)
  - NAUSEA [None]
  - INTENTIONAL OVERDOSE [None]
  - TACHYCARDIA [None]
  - MYDRIASIS [None]
